FAERS Safety Report 9443429 (Version 3)
Quarter: 2014Q1

REPORT INFORMATION
  Report Type: Report from Study
  Country: GB (occurrence: GB)
  Receive Date: 20130806
  Receipt Date: 20140306
  Transmission Date: 20141002
  Serious: Yes (Life-Threatening, Hospitalization)
  Sender: FDA-Public Use
  Company Number: GB-GLAXOSMITHKLINE-B0912816A

PATIENT
  Age: 68 Year
  Sex: Male
  Weight: 76 kg

DRUGS (7)
  1. DABRAFENIB [Suspect]
     Indication: MALIGNANT MELANOMA
     Dosage: 150MG TWICE PER DAY
     Dates: start: 20130702
  2. TRAMETINIB [Suspect]
     Indication: MALIGNANT MELANOMA
     Dosage: 2MG PER DAY
     Route: 048
     Dates: start: 20130702
  3. BENDROFLUMETHIAZIDE [Concomitant]
     Indication: HYPERTENSION
     Dosage: 2.5MG PER DAY
     Route: 048
     Dates: end: 20130731
  4. FELODIPINE [Concomitant]
     Indication: HYPERTENSION
     Dosage: 5MG PER DAY
     Route: 048
  5. RANITIDINE [Concomitant]
     Indication: PROPHYLAXIS
     Dosage: 150MG TWICE PER DAY
     Route: 048
     Dates: start: 20131017
  6. DEXAMETHASONE [Concomitant]
     Indication: METASTASES TO CENTRAL NERVOUS SYSTEM
     Dosage: 3MG PER DAY
     Route: 048
     Dates: start: 20131017, end: 20131021
  7. DALTEPARIN [Concomitant]
     Indication: THROMBOSIS PROPHYLAXIS
     Dosage: 5000UNIT PER DAY
     Route: 058
     Dates: start: 20131017

REACTIONS (4)
  - Renal failure acute [Recovered/Resolved]
  - Chills [Recovered/Resolved]
  - Chills [Recovered/Resolved]
  - Pollakiuria [Recovered/Resolved]
